FAERS Safety Report 18246307 (Version 3)
Quarter: 2020Q4

REPORT INFORMATION
  Report Type: Spontaneous
  Country: US (occurrence: US)
  Receive Date: 20200909
  Receipt Date: 20201113
  Transmission Date: 20210113
  Serious: No
  Sender: FDA-Public Use
  Company Number: US-BAYER-2020-187559

PATIENT
  Age: 40 Year
  Sex: Female

DRUGS (1)
  1. MIRENA [Suspect]
     Active Substance: LEVONORGESTREL
     Indication: CONTRACEPTION
     Dosage: 20 ?G PER DAY CONTINUOUSLY
     Route: 015
     Dates: start: 20161201, end: 20200917

REACTIONS (14)
  - Panic attack [Recovered/Resolved]
  - Hypomenorrhoea [Recovered/Resolved]
  - Hypoaesthesia [Recovered/Resolved]
  - Amenorrhoea [None]
  - Paraesthesia [Recovered/Resolved]
  - Swelling [Recovered/Resolved]
  - Abdominal distension [Not Recovered/Not Resolved]
  - Mood altered [Not Recovered/Not Resolved]
  - Feeling abnormal [None]
  - Menometrorrhagia [Recovered/Resolved]
  - Anxiety [Recovered/Resolved]
  - Depressed mood [None]
  - Fluid retention [Not Recovered/Not Resolved]
  - Discomfort [Not Recovered/Not Resolved]

NARRATIVE: CASE EVENT DATE: 20161201
